FAERS Safety Report 7002113-7 (Version None)
Quarter: 2010Q3

REPORT INFORMATION
  Report Type: 
  Country: None (occurrence: None)
  Receive Date: 20100917
  Receipt Date: 20100917
  Transmission Date: 20110219
  Serious: Yes (Other)
  Sender: FDA-Public Use
  Company Number: None

PATIENT
  Sex: Female
  Weight: 67.1324 kg

DRUGS (1)
  1. PREMARIN H-C VAGINAL CREAM [Suspect]
     Indication: HORMONE REPLACEMENT THERAPY
     Dosage: .625 MG 2 X DAY VAGINAL
     Route: 067
     Dates: start: 20060825, end: 20100507

REACTIONS (3)
  - FAECES HARD [None]
  - GASTROINTESTINAL DISORDER [None]
  - PAIN [None]
